FAERS Safety Report 10687061 (Version 2)
Quarter: 2015Q1

REPORT INFORMATION
  Report Type: Spontaneous
  Country: US (occurrence: US)
  Receive Date: 20150102
  Receipt Date: 20150102
  Transmission Date: 20150720
  Serious: No
  Sender: FDA-Public Use
  Company Number: US-DRREDDYS-USA/USA/14/0041498

PATIENT
  Age: 69 Year
  Sex: Male

DRUGS (5)
  1. IBUPROFEN. [Suspect]
     Active Substance: IBUPROFEN
     Indication: BURSITIS
  2. ASPIRIN. [Concomitant]
     Active Substance: ASPIRIN
     Indication: PRODUCT USED FOR UNKNOWN INDICATION
     Route: 065
  3. IBUPROFEN. [Suspect]
     Active Substance: IBUPROFEN
     Indication: TENDON RUPTURE
  4. IBUPROFEN. [Suspect]
     Active Substance: IBUPROFEN
     Indication: SPINAL COMPRESSION FRACTURE
     Route: 048
     Dates: start: 20140508
  5. OMEPRAZOLE. [Concomitant]
     Active Substance: OMEPRAZOLE
     Indication: PROPHYLAXIS AGAINST GASTROINTESTINAL ULCER
     Route: 065

REACTIONS (6)
  - Mouth swelling [Recovered/Resolved]
  - Dizziness [Recovered/Resolved]
  - Gastrointestinal sounds abnormal [Recovered/Resolved]
  - Flatulence [Recovered/Resolved]
  - Eructation [Unknown]
  - Product quality issue [Unknown]

NARRATIVE: CASE EVENT DATE: 20140508
